FAERS Safety Report 16251778 (Version 1)
Quarter: 2019Q2

REPORT INFORMATION
  Report Type: Spontaneous
  Country: CA (occurrence: CA)
  Receive Date: 20190429
  Receipt Date: 20190429
  Transmission Date: 20190711
  Serious: Yes (Life-Threatening, Hospitalization)
  Sender: FDA-Public Use
  Company Number: CA-NOVOPROD-658673

PATIENT
  Age: 70 Year
  Sex: Female
  Weight: 38 kg

DRUGS (6)
  1. NOVORAPID [Suspect]
     Active Substance: INSULIN ASPART
     Indication: DIABETES MELLITUS
     Dosage: 6 IU, TID
     Route: 058
  2. APO FUROSEMIDE [Concomitant]
     Active Substance: FUROSEMIDE
  3. GLUCAGON. [Suspect]
     Active Substance: GLUCAGON
     Indication: PRODUCT USED FOR UNKNOWN INDICATION
     Dosage: UNK
     Route: 065
  4. AMIODARONE [Concomitant]
     Active Substance: AMIODARONE
  5. HUMULIN R [Suspect]
     Active Substance: INSULIN HUMAN
     Indication: DIABETES MELLITUS
     Dosage: 9 IU, QD
     Route: 058
  6. ACETYLSALICYLIC ACID [Concomitant]
     Active Substance: ASPIRIN
     Route: 065

REACTIONS (4)
  - Pyrexia [Unknown]
  - Hyperglycaemia [Unknown]
  - General physical health deterioration [Unknown]
  - Hypoglycaemic coma [Unknown]
